FAERS Safety Report 11560296 (Version 1)
Quarter: 2015Q3

REPORT INFORMATION
  Report Type: Spontaneous
  Country: US (occurrence: US)
  Receive Date: 20150928
  Receipt Date: 20150928
  Transmission Date: 20151125
  Serious: No
  Sender: FDA-Public Use
  Company Number: US-PERRIGO-15US003977

PATIENT
  Age: 54 Year
  Sex: Male
  Weight: 63.49 kg

DRUGS (1)
  1. NICOTINE POLACRILEX, COATED MINT FLAVOR [Suspect]
     Active Substance: NICOTINE
     Indication: SMOKING CESSATION THERAPY
     Dosage: HALF PIECE, SINGLE
     Route: 002
     Dates: start: 20150413, end: 20150413

REACTIONS (5)
  - Heart rate increased [Recovered/Resolved]
  - Incorrect dose administered [Recovered/Resolved]
  - Wrong technique in product usage process [Recovered/Resolved]
  - Nausea [Recovered/Resolved]
  - Nervousness [Recovered/Resolved]

NARRATIVE: CASE EVENT DATE: 20150413
